FAERS Safety Report 8949659 (Version 1)
Quarter: 2012Q4

REPORT INFORMATION
  Report Type: 
  Country: BR (occurrence: BR)
  Receive Date: 20121206
  Receipt Date: 20121206
  Transmission Date: 20130627
  Serious: Yes (Other)
  Sender: FDA-Public Use
  Company Number: BR-JNJFOC-20121114830

PATIENT
  Age: 39 Year
  Sex: Female
  Weight: 51 kg

DRUGS (4)
  1. EVRA [Suspect]
     Indication: ADNEXA UTERI PAIN
     Route: 062
     Dates: start: 201201, end: 201208
  2. EVRA [Suspect]
     Indication: ADNEXA UTERI PAIN
     Route: 062
  3. EVRA [Suspect]
     Indication: CONTRACEPTION
     Route: 062
  4. EVRA [Suspect]
     Indication: CONTRACEPTION
     Route: 062
     Dates: start: 201201, end: 201208

REACTIONS (12)
  - Hepatic steatosis [Unknown]
  - Inappropriate schedule of drug administration [Unknown]
  - Blood cholesterol increased [Not Recovered/Not Resolved]
  - Blood triglycerides increased [Not Recovered/Not Resolved]
  - Yellow skin [Not Recovered/Not Resolved]
  - Abdominal pain [Not Recovered/Not Resolved]
  - Muscle spasms [Not Recovered/Not Resolved]
  - Vomiting [Not Recovered/Not Resolved]
  - Dizziness [Not Recovered/Not Resolved]
  - Dyspepsia [Not Recovered/Not Resolved]
  - Drug prescribing error [Unknown]
  - Off label use [Unknown]
